FAERS Safety Report 6935313 (Version 6)
Quarter: 2020Q3

REPORT INFORMATION
  Report Type: Report from Study
  Country: IN (occurrence: IN)
  Receive Date: 20090312
  Receipt Date: 20090413
  Transmission Date: 20201104
  Serious: Yes (Hospitalization)
  Sender: FDA-Public Use
  Company Number: IN-WYE-H08494909

PATIENT
  Age: 63 Year
  Sex: Male
  Weight: 65 kg

DRUGS (9)
  1. METFORMIN [Concomitant]
     Active Substance: METFORMIN HYDROCHLORIDE
     Indication: DIABETES MELLITUS
     Route: 048
     Dates: start: 200809, end: 20090311
  2. INTERFERON ALFA NOS [Suspect]
     Active Substance: INTERFERON ALFA-2A OR INTERFERON ALFA-2B
     Indication: METASTATIC RENAL CELL CARCINOMA
     Dosage: 3 MIU 3 TIMES PER WEEK
     Route: 058
     Dates: start: 20090226, end: 20090304
  3. NEUROBION FORTE [Concomitant]
     Active Substance: CYANOCOBALAMIN\PYRIDOXINE HYDROCHLORIDE\THIAMINE DISULFIDE
     Indication: PARAESTHESIA
     Route: 048
     Dates: start: 20090305
  4. ETORICOXIB. [Concomitant]
     Active Substance: ETORICOXIB
     Indication: PARAESTHESIA
     Route: 048
     Dates: start: 20090221
  5. PREGABALIN. [Concomitant]
     Active Substance: PREGABALIN
     Indication: PARAESTHESIA
     Route: 048
     Dates: start: 20090305
  6. GLIMEPIRIDE. [Concomitant]
     Active Substance: GLIMEPIRIDE
     Indication: DIABETES MELLITUS
     Route: 048
     Dates: start: 200809, end: 20090311
  7. AMLODIPINE [Concomitant]
     Active Substance: AMLODIPINE BESYLATE
     Indication: HYPERTENSION
     Route: 048
     Dates: start: 200809, end: 20090311
  8. INTERFERON ALFA NOS [Suspect]
     Active Substance: INTERFERON ALFA-2A OR INTERFERON ALFA-2B
     Dosage: 6 MIU 3 TIMES PER WEEK
     Route: 058
     Dates: start: 20090305, end: 20090310
  9. BEVACIZUMAB. [Concomitant]
     Active Substance: BEVACIZUMAB
     Indication: METASTATIC RENAL CELL CARCINOMA
     Route: 042
     Dates: start: 20090226, end: 20090310

REACTIONS (4)
  - Dyspnoea [Recovered/Resolved]
  - Chest pain [Recovered/Resolved]
  - Respiratory tract infection [Recovered/Resolved]
  - Myalgia [Recovered/Resolved]

NARRATIVE: CASE EVENT DATE: 20090308
